FAERS Safety Report 4582979-0 (Version None)
Quarter: 2005Q1

REPORT INFORMATION
  Report Type: 
  Country: None (occurrence: None)
  Receive Date: 20050127
  Receipt Date: 20040920
  Transmission Date: 20050727
  Serious: No
  Sender: FDA-Public Use
  Company Number: USA040978795

PATIENT
  Age: 6 Year
  Sex: Male
  Weight: 22 kg

DRUGS (1)
  1. STRATTERA [Suspect]
     Indication: ATTENTION DEFICIT/HYPERACTIVITY DISORDER
     Dosage: 40 MG/1 IN THE MORNING
     Dates: start: 20040601

REACTIONS (6)
  - ABNORMAL BEHAVIOUR [None]
  - DECREASED APPETITE [None]
  - DRUG INEFFECTIVE [None]
  - FATIGUE [None]
  - PRESCRIBED OVERDOSE [None]
  - SOMNOLENCE [None]
